FAERS Safety Report 14289631 (Version 1)
Quarter: 2017Q4

REPORT INFORMATION
  Report Type: Spontaneous
  Country: AT (occurrence: AT)
  Receive Date: 20171215
  Receipt Date: 20171215
  Transmission Date: 20180321
  Serious: Yes (Other)
  Sender: FDA-Public Use
  Company Number: AT-009507513-1712AUT005527

PATIENT
  Age: 53 Year
  Sex: Female

DRUGS (1)
  1. SIMVASTATIN. [Suspect]
     Active Substance: SIMVASTATIN
     Dosage: UNK

REACTIONS (3)
  - Cerebellar infarction [Unknown]
  - Haemorrhage [Unknown]
  - Hypothyroidism [Unknown]

NARRATIVE: CASE EVENT DATE: 2015
